FAERS Safety Report 19663942 (Version 2)
Quarter: 2021Q3

REPORT INFORMATION
  Report Type: Report from Study
  Country: AR (occurrence: AR)
  Receive Date: 20210805
  Receipt Date: 20210823
  Transmission Date: 20211014
  Serious: Yes (Hospitalization, Other)
  Sender: FDA-Public Use
  Company Number: AR-TAKEDA-2021TUS046993

PATIENT
  Age: 34 Year
  Sex: Male

DRUGS (2)
  1. TEDUGLUTIDE [Suspect]
     Active Substance: TEDUGLUTIDE
     Indication: PRODUCT USED FOR UNKNOWN INDICATION
     Dosage: 1 DOSAGE FORM, QD
     Route: 058
     Dates: start: 20180707
  2. VITAMINS [Concomitant]
     Active Substance: VITAMINS
     Indication: PRODUCT USED FOR UNKNOWN INDICATION
     Route: 065

REACTIONS (6)
  - Dehydration [Recovering/Resolving]
  - Anaemia [Recovering/Resolving]
  - Device related infection [Recovering/Resolving]
  - Mobility decreased [Recovering/Resolving]
  - Malnutrition [Recovering/Resolving]
  - Diplegia [Recovering/Resolving]

NARRATIVE: CASE EVENT DATE: 20210718
